FAERS Safety Report 7677198-5 (Version None)
Quarter: 2011Q3

REPORT INFORMATION
  Report Type: 
  Country: None (occurrence: None)
  Receive Date: 20110811
  Receipt Date: 20110803
  Transmission Date: 20111222
  Serious: Yes (Hospitalization)
  Sender: FDA-Public Use
  Company Number: DE-TEVA-295354GER

PATIENT
  Age: 63 Year
  Sex: Female
  Weight: 65 kg

DRUGS (7)
  1. CETUXIMAB [Suspect]
     Indication: COLORECTAL CANCER METASTATIC
     Route: 042
     Dates: start: 20110512
  2. ENALAPRIL MALEATE [Concomitant]
     Dates: start: 20100101
  3. LEUCOVORIN CALCIUM [Suspect]
     Indication: COLORECTAL CANCER METASTATIC
     Route: 042
     Dates: start: 20110512
  4. IRINOTECAN HCL [Suspect]
     Indication: COLORECTAL CANCER METASTATIC
     Route: 042
     Dates: start: 20110512
  5. ENOXAPARIN SODIUM [Concomitant]
     Dates: start: 20110621
  6. FLUOROURACIL [Suspect]
     Indication: COLORECTAL CANCER METASTATIC
     Route: 040
     Dates: start: 20110512
  7. FLUOROURACIL [Suspect]
     Dosage: OVER 46 HOURS
     Route: 041
     Dates: start: 20110512

REACTIONS (1)
  - HERPES SIMPLEX [None]
